FAERS Safety Report 14683516 (Version 2)
Quarter: 2018Q2

REPORT INFORMATION
  Report Type: Spontaneous
  Country: FR (occurrence: FR)
  Receive Date: 20180327
  Receipt Date: 20180417
  Transmission Date: 20180711
  Serious: Yes (Death, Other)
  Sender: FDA-Public Use
  Company Number: FR-SUN PHARMACEUTICAL INDUSTRIES LTD-2018RR-168334

PATIENT
  Age: 32 Year
  Sex: Male

DRUGS (4)
  1. PROCARBAZINE [Suspect]
     Active Substance: PROCARBAZINE
     Indication: OLIGODENDROGLIOMA
     Dosage: 75 MG/M2 ON DAY 8-21
     Route: 065
     Dates: start: 201307
  2. CCNU [Suspect]
     Active Substance: LOMUSTINE
     Indication: OLIGODENDROGLIOMA
     Dosage: 130 MG/M2 ON DAY 1
     Route: 065
     Dates: start: 201307
  3. TEMOZOLOMIDE. [Suspect]
     Active Substance: TEMOZOLOMIDE
     Indication: OLIGODENDROGLIOMA
     Dosage: 200 MG/M2/DAY FOR 5 DAYS
     Route: 065
  4. VINCRISTINE [Suspect]
     Active Substance: VINCRISTINE
     Indication: OLIGODENDROGLIOMA
     Dosage: 1.4 MG/M2 ON DAY 8 AND 29 (CUMULATIVE DOSE; 6MG)
     Route: 065
     Dates: start: 201307

REACTIONS (4)
  - Demyelinating polyneuropathy [Unknown]
  - Neoplasm progression [Fatal]
  - Condition aggravated [Recovering/Resolving]
  - Hereditary motor and sensory neuropathy [Recovering/Resolving]
